FAERS Safety Report 8255225-4 (Version None)
Quarter: 2012Q1

REPORT INFORMATION
  Report Type: 
  Country: None (occurrence: None)
  Receive Date: 20120322
  Receipt Date: 20111222
  Transmission Date: 20120608
  Serious: Yes (Hospitalization)
  Sender: FDA-Public Use
  Company Number: UTC-013800

PATIENT
  Age: 37 Year
  Sex: Female
  Weight: 97.7 kg

DRUGS (5)
  1. DIURETICS (DIURETICS) [Concomitant]
  2. DIGOXIN [Concomitant]
  3. ADCIRCA [Concomitant]
  4. TYVASO [Suspect]
     Indication: PULMONARY ARTERIAL HYPERTENSION
     Dosage: 24 MCG (6 MCG, 4 IN 1 D), INHALATION
     Route: 055
     Dates: start: 20110712
  5. TRALEER (BOSENTAN) [Concomitant]

REACTIONS (2)
  - CHEST PAIN [None]
  - DYSPNOEA [None]
